FAERS Safety Report 13680303 (Version 2)
Quarter: 2017Q3

REPORT INFORMATION
  Report Type: Report from Study
  Country: AT (occurrence: AT)
  Receive Date: 20170622
  Receipt Date: 20170726
  Transmission Date: 20171127
  Serious: Yes (Hospitalization)
  Sender: FDA-Public Use
  Company Number: AT-ROCHE-1953900

PATIENT
  Age: 4 Year
  Sex: Female
  Weight: 12.3 kg

DRUGS (7)
  1. CELECOXIB. [Suspect]
     Active Substance: CELECOXIB
     Indication: MEDULLOBLASTOMA
     Route: 048
     Dates: start: 20170612
  2. ETOPOSIDE. [Suspect]
     Active Substance: ETOPOSIDE
     Indication: MEDULLOBLASTOMA
     Dosage: ALTERNATING 21-DAY CYCLES OF DAILY
     Route: 048
     Dates: start: 20170612
  3. FENOFIBRATE. [Suspect]
     Active Substance: FENOFIBRATE
     Indication: MEDULLOBLASTOMA
     Route: 048
     Dates: start: 20170612
  4. EUSAPRIM (AUSTRIA) [Concomitant]
     Indication: PROPHYLAXIS
     Dosage: (TUESDAY TO THURSDAY)
     Route: 048
     Dates: start: 20170613
  5. THALIDOMIDE [Suspect]
     Active Substance: THALIDOMIDE
     Indication: MEDULLOBLASTOMA
     Route: 048
     Dates: start: 20170612
  6. BEVACIZUMAB. [Suspect]
     Active Substance: BEVACIZUMAB
     Indication: MEDULLOBLASTOMA
     Route: 042
     Dates: start: 20170612
  7. ETOPOSIDE. [Suspect]
     Active Substance: ETOPOSIDE
     Dosage: 0.5 MG X 5D EVERY 4 WEEKS?.5MG, INTRATHECAL, DAY 1-5, EVERY FOUR WEEKS
     Route: 050

REACTIONS (1)
  - Seizure [Unknown]

NARRATIVE: CASE EVENT DATE: 20170618
